FAERS Safety Report 18458120 (Version 1)
Quarter: 2020Q4

REPORT INFORMATION
  Report Type: Spontaneous
  Country: IT (occurrence: IT)
  Receive Date: 20201103
  Receipt Date: 20201103
  Transmission Date: 20210114
  Serious: Yes (Hospitalization)
  Sender: FDA-Public Use
  Company Number: IT-TEVA-2020-IT-1844132

PATIENT
  Age: 56 Year
  Sex: Male

DRUGS (5)
  1. GASTROLOC [Concomitant]
  2. ATORVASTATIN [Suspect]
     Active Substance: ATORVASTATIN
     Indication: DIABETES MELLITUS
     Dosage: 20 MG
     Route: 048
     Dates: start: 20200101, end: 20201007
  3. XATRAL [Concomitant]
     Active Substance: ALFUZOSIN
  4. TRIATEC [RAMIPRIL] [Concomitant]
     Active Substance: RAMIPRIL
  5. CARDURA [Concomitant]
     Active Substance: DOXAZOSIN MESYLATE

REACTIONS (3)
  - Blood creatine phosphokinase increased [Recovering/Resolving]
  - Myalgia [Recovering/Resolving]
  - Haemoglobinaemia [Recovering/Resolving]

NARRATIVE: CASE EVENT DATE: 20201007
